FAERS Safety Report 16830915 (Version 1)
Quarter: 2019Q3

REPORT INFORMATION
  Report Type: Spontaneous
  Country: US (occurrence: US)
  Receive Date: 20190920
  Receipt Date: 20190920
  Transmission Date: 20191005
  Serious: No
  Sender: FDA-Public Use
  Company Number: US-009507513-1909USA007572

PATIENT
  Age: 33 Year
  Sex: Female
  Weight: 87 kg

DRUGS (2)
  1. NEXPLANON [Suspect]
     Active Substance: ETONOGESTREL
     Dosage: 1 DOSAGE FORM
     Route: 059
     Dates: start: 20160918, end: 20190918
  2. NEXPLANON [Suspect]
     Active Substance: ETONOGESTREL
     Dosage: 1 DOSAGE FORM, ONE TIME
     Route: 059
     Dates: start: 20190918

REACTIONS (2)
  - Device difficult to use [Unknown]
  - Device deployment issue [Unknown]

NARRATIVE: CASE EVENT DATE: 20190918
